FAERS Safety Report 19151912 (Version 1)
Quarter: 2021Q2

REPORT INFORMATION
  Report Type: Spontaneous
  Country: US (occurrence: US)
  Receive Date: 20210419
  Receipt Date: 20210419
  Transmission Date: 20210717
  Serious: No
  Sender: FDA-Public Use
  Company Number: US-DRREDDYS-USA/USA/21/0133868

PATIENT
  Age: 39 Year
  Sex: Female

DRUGS (3)
  1. CELEBREX [Suspect]
     Active Substance: CELECOXIB
     Indication: BIPOLAR I DISORDER
  2. ZIPRASIDONE. [Suspect]
     Active Substance: ZIPRASIDONE
     Indication: BIPOLAR I DISORDER
     Dosage: 1 CAPSULE BY MOUTH EVERY NIGHT AT BEDTIME (QHS)
     Route: 048
     Dates: start: 20150111, end: 20150112
  3. GEODON [Suspect]
     Active Substance: ZIPRASIDONE HYDROCHLORIDE\ZIPRASIDONE MESYLATE
     Indication: BIPOLAR I DISORDER
     Dosage: FOR 16 YEARS
     Route: 048

REACTIONS (6)
  - Dyspnoea [Unknown]
  - Cough [Unknown]
  - Urticaria [Unknown]
  - Abnormal sensation in eye [Unknown]
  - Pharyngeal swelling [Unknown]
  - Vision blurred [Unknown]
